FAERS Safety Report 16286569 (Version 1)
Quarter: 2019Q2

REPORT INFORMATION
  Report Type: Spontaneous
  Country: US (occurrence: US)
  Receive Date: 20190507
  Receipt Date: 20190507
  Transmission Date: 20190711
  Serious: Yes (Hospitalization)
  Sender: FDA-Public Use
  Company Number: None

PATIENT
  Age: 45 Year
  Sex: Female

DRUGS (2)
  1. NOVOLOG FLEXPEN INJECTION [Concomitant]
     Dates: start: 20190430
  2. HUMIRA [Suspect]
     Active Substance: ADALIMUMAB
     Indication: CROHN^S DISEASE
     Dosage: ?          OTHER FREQUENCY:ONCE A WEEK;?
     Route: 058

REACTIONS (6)
  - Diarrhoea [None]
  - Weight decreased [None]
  - Back pain [None]
  - Nausea [None]
  - Rheumatoid arthritis [None]
  - Abdominal pain [None]

NARRATIVE: CASE EVENT DATE: 20190418
